FAERS Safety Report 4912472-4 (Version None)
Quarter: 2006Q1

REPORT INFORMATION
  Report Type: 
  Country: None (occurrence: None)
  Receive Date: 20060215
  Receipt Date: 20050420
  Transmission Date: 20060701
  Serious: No
  Sender: FDA-Public Use
  Company Number: US-GLAXOSMITHKLINE-A0555036A

PATIENT
  Age: 32 Year
  Sex: Male

DRUGS (1)
  1. VALTREX [Suspect]
     Dosage: 2G PER DAY
     Route: 048

REACTIONS (1)
  - DIZZINESS [None]
